FAERS Safety Report 9452249 (Version 1)
Quarter: 2013Q3

REPORT INFORMATION
  Report Type: Report from Study
  Country: US (occurrence: US)
  Receive Date: 20130812
  Receipt Date: 20130812
  Transmission Date: 20140515
  Serious: Yes (Other)
  Sender: FDA-Public Use
  Company Number: US-ROCHE-1258974

PATIENT
  Age: 39 Year
  Sex: Female

DRUGS (7)
  1. RITUXAN [Suspect]
     Indication: PRODUCT USED FOR UNKNOWN INDICATION
     Route: 042
     Dates: start: 20120717
  2. RITUXAN [Suspect]
     Route: 042
     Dates: start: 20130529
  3. RITUXAN [Suspect]
     Route: 042
     Dates: start: 20130619
  4. ZANTAC [Concomitant]
     Route: 065
     Dates: start: 20120717
  5. DEXAMETHASONE [Concomitant]
  6. SOLU-CORTEF [Concomitant]
  7. BENADRYL (UNITED STATES) [Concomitant]

REACTIONS (6)
  - Ear pruritus [Recovered/Resolved]
  - Laboratory test abnormal [Unknown]
  - Dyspnoea [Unknown]
  - Oral pruritus [Recovered/Resolved]
  - Paraesthesia [Recovered/Resolved]
  - Paraesthesia oral [Recovered/Resolved]
